FAERS Safety Report 8472785-9 (Version None)
Quarter: 2012Q2

REPORT INFORMATION
  Report Type: 
  Country: None (occurrence: None)
  Receive Date: 20120622
  Receipt Date: 20120622
  Transmission Date: 20120825
  Serious: Yes (Hospitalization)
  Sender: FDA-Public Use
  Company Number: None

PATIENT
  Sex: Female

DRUGS (1)
  1. NOVOLOG [Suspect]
     Indication: DIABETES MELLITUS
     Dosage: 10 MG 3 TIMES A DAY SUBDERMAL
     Route: 059

REACTIONS (10)
  - LIP SWELLING [None]
  - SWOLLEN TONGUE [None]
  - PRURITUS [None]
  - TREMOR [None]
  - FATIGUE [None]
  - IRRITABILITY [None]
  - RESPIRATORY DISORDER [None]
  - ACIDOSIS [None]
  - EAR DISCOMFORT [None]
  - CONFUSIONAL STATE [None]
